FAERS Safety Report 6717592-X (Version None)
Quarter: 2010Q2

REPORT INFORMATION
  Report Type: 
  Country: None (occurrence: None)
  Receive Date: 20100505
  Receipt Date: 20100427
  Transmission Date: 20101027
  Serious: Yes (Death, Hospitalization)
  Sender: FDA-Public Use
  Company Number: ALL1-2010-01662

PATIENT
  Age: 71 Year
  Sex: Male
  Weight: 76.6 kg

DRUGS (2)
  1. FOSRENOL [Suspect]
     Indication: HYPERPHOSPHATAEMIA
     Dosage: 1000 MG AFTER EVERY MEAL, ORAL
     Route: 048
     Dates: start: 20060101
  2. PHOSLO [Concomitant]

REACTIONS (5)
  - DEVICE MALFUNCTION [None]
  - DIALYSIS [None]
  - LOSS OF CONSCIOUSNESS [None]
  - MYOCARDIAL INFARCTION [None]
  - TREATMENT NONCOMPLIANCE [None]
